FAERS Safety Report 9214552 (Version 1)
Quarter: 2013Q2

REPORT INFORMATION
  Report Type: Spontaneous
  Country: MX (occurrence: MX)
  Receive Date: 20130405
  Receipt Date: 20130405
  Transmission Date: 20140414
  Serious: Yes (Other)
  Sender: FDA-Public Use
  Company Number: PHHY2013MX032084

PATIENT
  Sex: Male
  Weight: 1.38 kg

DRUGS (3)
  1. GLIVEC [Suspect]
     Indication: CHRONIC MYELOID LEUKAEMIA
     Dosage: MATERNAL DOSE: 600 MG DAILY
     Route: 064
  2. HIDROXIUREA [Concomitant]
     Route: 064
  3. HYDREA [Concomitant]
     Route: 064

REACTIONS (2)
  - Premature baby [Unknown]
  - Foetal exposure during pregnancy [Unknown]
